FAERS Safety Report 10648925 (Version 2)
Quarter: 2019Q2

REPORT INFORMATION
  Report Type: Spontaneous
  Country: US (occurrence: US)
  Receive Date: 20141212
  Receipt Date: 20190624
  Transmission Date: 20190711
  Serious: Yes (Hospitalization, Other)
  Sender: FDA-Public Use
  Company Number: US-RB PHARMACEUTICALS LIMITED-RB-73948-2014

PATIENT
  Age: 60 Year
  Sex: Female

DRUGS (9)
  1. BUPRENORPHINE/NALOXONE [Suspect]
     Active Substance: BUPRENORPHINE\NALOXONE
     Dosage: DOSE WAS DIVIDED AND GIVEN BID
     Route: 065
  2. BUPRENORPHINE/NALOXONE [Suspect]
     Active Substance: BUPRENORPHINE\NALOXONE
     Dosage: FILMS OF 8MG/2MG, TID
     Route: 065
  3. HYDROCHLOROTHIAZIDE. [Concomitant]
     Active Substance: HYDROCHLOROTHIAZIDE
     Indication: PRODUCT USED FOR UNKNOWN INDICATION
     Dosage: UNK
     Route: 065
  4. LISINOPRIL. [Concomitant]
     Active Substance: LISINOPRIL
     Indication: BLOOD PRESSURE MEASUREMENT
     Dosage: 10 MG, QD
     Route: 065
  5. BUPRENORPHINE/NALOXONE [Suspect]
     Active Substance: BUPRENORPHINE\NALOXONE
     Indication: DRUG DEPENDENCE
     Dosage: TWO 8/2 MG STRIPS PER DAY
     Route: 065
  6. CLONIDINE. [Suspect]
     Active Substance: CLONIDINE
     Indication: HYPERTENSION
     Dosage: 0.2 MG, BID
     Route: 065
  7. DILTIAZEM. [Concomitant]
     Active Substance: DILTIAZEM
     Indication: PRODUCT USED FOR UNKNOWN INDICATION
     Dosage: UNK
     Route: 065
  8. AMITRIPTYLINE [Suspect]
     Active Substance: AMITRIPTYLINE
     Indication: DEPRESSION
     Dosage: 100 MG, AT BED TIME
     Route: 065
  9. METOPROLOL. [Concomitant]
     Active Substance: METOPROLOL
     Indication: HYPERTENSION
     Dosage: 50 MG, BID
     Route: 065

REACTIONS (19)
  - Cerebral atrophy [Unknown]
  - Hypertensive urgency [Recovered/Resolved]
  - Loss of consciousness [Unknown]
  - Drug abuse [Unknown]
  - Headache [Recovered/Resolved]
  - Product prescribing error [Unknown]
  - Mental status changes [Unknown]
  - Encephalomalacia [Unknown]
  - Lacunar infarction [Unknown]
  - Acute kidney injury [Recovered/Resolved]
  - Intentional overdose [Unknown]
  - Vomiting [Unknown]
  - Withdrawal hypertension [Unknown]
  - Drug dependence [Unknown]
  - Head injury [Unknown]
  - Nausea [Unknown]
  - Cerebellar atrophy [Unknown]
  - Hallucination [Unknown]
  - Fall [Unknown]
